FAERS Safety Report 23679064 (Version 1)
Quarter: 2024Q1

REPORT INFORMATION
  Report Type: Spontaneous
  Country: US (occurrence: None)
  Receive Date: 20240327
  Receipt Date: 20240327
  Transmission Date: 20240410
  Serious: Yes (Other)
  Sender: FDA-Public Use
  Company Number: None

PATIENT
  Age: 54 Year
  Sex: Female

DRUGS (21)
  1. DUPIXENT [Suspect]
     Active Substance: DUPILUMAB
     Indication: Asthma
     Dosage: FREQUENCY : ONCE;?
     Route: 058
     Dates: start: 20240122, end: 20240129
  2. METHOCARBAMOL [Concomitant]
     Active Substance: METHOCARBAMOL
  3. Azelastine 0.1% nasal spray [Concomitant]
  4. Breo Elipta oral inhaler [Concomitant]
  5. ROSUVASTATIN [Concomitant]
     Active Substance: ROSUVASTATIN
  6. DILTIAZEM [Concomitant]
     Active Substance: DILTIAZEM
  7. FLUTICASONE [Concomitant]
     Active Substance: FLUTICASONE
  8. HYDROCHLOROTHIAZIDE [Concomitant]
     Active Substance: HYDROCHLOROTHIAZIDE
  9. GABAPENTIN [Concomitant]
     Active Substance: GABAPENTIN
  10. Klor-Con ER [Concomitant]
  11. Levalbuterol neb [Concomitant]
  12. LEVOCETIRIZINE [Concomitant]
     Active Substance: LEVOCETIRIZINE
  13. MELOXICAM [Concomitant]
     Active Substance: MELOXICAM
  14. MONTELUKAST [Concomitant]
     Active Substance: MONTELUKAST SODIUM
  15. NORTRIPTYLINE [Concomitant]
     Active Substance: NORTRIPTYLINE
  16. Optivar 0.05% Opth solution [Concomitant]
  17. PANTOPRAZOLE [Concomitant]
     Active Substance: PANTOPRAZOLE
  18. SPIRIVA RESPIMAT [Concomitant]
     Active Substance: TIOTROPIUM BROMIDE
  19. TIZANIDINE [Concomitant]
     Active Substance: TIZANIDINE
  20. TOPAMAX [Concomitant]
     Active Substance: TOPIRAMATE
  21. VITAMIN D3 [Concomitant]
     Active Substance: CHOLECALCIFEROL

REACTIONS (1)
  - Rash [None]

NARRATIVE: CASE EVENT DATE: 20240129
